FAERS Safety Report 24332063 (Version 3)
Quarter: 2024Q4

REPORT INFORMATION
  Report Type: Spontaneous
  Country: CA (occurrence: CA)
  Receive Date: 20240918
  Receipt Date: 20241128
  Transmission Date: 20250114
  Serious: Yes (Other)
  Sender: ASCEND THERAPEUTICS US, LLC
  Company Number: CA-Ascend Therapeutics US, LLC-2161733

PATIENT
  Sex: Female

DRUGS (4)
  1. ESTROGEL [Suspect]
     Active Substance: ESTRADIOL
     Indication: Hormone replacement therapy
     Dates: start: 2023
  2. ESTROGEL [Suspect]
     Active Substance: ESTRADIOL
     Indication: Menopause
  3. ESTROGEL [Suspect]
     Active Substance: ESTRADIOL
     Dates: start: 2023
  4. PROMETRIUM [Suspect]
     Active Substance: PROGESTERONE
     Dates: start: 2023

REACTIONS (25)
  - Cervical cyst [Recovered/Resolved]
  - Neck pain [Unknown]
  - Incorrect dose administered [Unknown]
  - Vaginal discharge [Unknown]
  - Breast pain [Unknown]
  - Arthralgia [Unknown]
  - Vertigo [Unknown]
  - Vision blurred [Unknown]
  - Polyp [Unknown]
  - Throat tightness [Unknown]
  - Hypoaesthesia [Unknown]
  - Disturbance in attention [Unknown]
  - Dyslexia [Unknown]
  - Haemorrhage [Unknown]
  - Feeling hot [Unknown]
  - COVID-19 [Recovered/Resolved]
  - Choking [Unknown]
  - Headache [Not Recovered/Not Resolved]
  - Abdominal pain [Not Recovered/Not Resolved]
  - Fatigue [Not Recovered/Not Resolved]
  - Dizziness [Not Recovered/Not Resolved]
  - Insomnia [Not Recovered/Not Resolved]
  - Anxiety [Not Recovered/Not Resolved]
  - Vulvovaginal pain [Not Recovered/Not Resolved]
  - Dyspnoea [Not Recovered/Not Resolved]

NARRATIVE: CASE EVENT DATE: 20230801
